FAERS Safety Report 22164448 (Version 5)
Quarter: 2023Q2

REPORT INFORMATION
  Report Type: Report from Study
  Country: US (occurrence: US)
  Receive Date: 20230403
  Receipt Date: 20230623
  Transmission Date: 20230721
  Serious: Yes (Hospitalization, Other)
  Sender: FDA-Public Use
  Company Number: US-ABBVIE-4712258

PATIENT
  Age: 71 Year
  Sex: Female

DRUGS (4)
  1. RINVOQ [Suspect]
     Active Substance: UPADACITINIB
     Indication: Psoriatic arthropathy
     Dosage: UNKNOWN
     Route: 048
     Dates: start: 20220308, end: 20230218
  2. RINVOQ [Suspect]
     Active Substance: UPADACITINIB
     Indication: Psoriatic arthropathy
     Route: 048
     Dates: start: 20230208, end: 20230208
  3. RINVOQ [Suspect]
     Active Substance: UPADACITINIB
     Indication: Psoriatic arthropathy
     Route: 048
     Dates: start: 202210, end: 20230218
  4. RINVOQ [Suspect]
     Active Substance: UPADACITINIB
     Indication: Psoriatic arthropathy
     Route: 048
     Dates: start: 20221005

REACTIONS (13)
  - Shoulder arthroplasty [Recovering/Resolving]
  - Abdominal hernia [Recovered/Resolved]
  - Arthritis [Recovering/Resolving]
  - Atrial fibrillation [Recovered/Resolved]
  - Joint warmth [Unknown]
  - Haematemesis [Recovered/Resolved]
  - Chest pain [Recovered/Resolved]
  - Hernia [Recovered/Resolved]
  - Hernia [Recovering/Resolving]
  - Haemoptysis [Unknown]
  - Cardiac disorder [Recovered/Resolved]
  - Upper respiratory tract infection [Recovering/Resolving]
  - Atrial fibrillation [Recovering/Resolving]

NARRATIVE: CASE EVENT DATE: 20230218
